FAERS Safety Report 9415205 (Version 1)
Quarter: 2013Q3

REPORT INFORMATION
  Report Type: Spontaneous
  Country: US (occurrence: US)
  Receive Date: 20130723
  Receipt Date: 20130723
  Transmission Date: 20140515
  Serious: No
  Sender: FDA-Public Use
  Company Number: US-MYLANLABS-2013S1014645

PATIENT
  Sex: Male

DRUGS (3)
  1. GALANTAMINE HYDROBROMIDE [Suspect]
     Indication: DEMENTIA
     Route: 048
     Dates: start: 201302
  2. HYPERTENSION MEDICATION [Concomitant]
  3. ALLOPURINOL [Concomitant]
     Indication: GOUT

REACTIONS (2)
  - Lethargy [Not Recovered/Not Resolved]
  - Dyspnoea exertional [Not Recovered/Not Resolved]
